FAERS Safety Report 18716191 (Version 1)
Quarter: 2021Q1

REPORT INFORMATION
  Report Type: Spontaneous
  Country: JP (occurrence: JP)
  Receive Date: 20210108
  Receipt Date: 20210108
  Transmission Date: 20210419
  Serious: Yes (Disabling, Other)
  Sender: FDA-Public Use
  Company Number: JP-GLAXOSMITHKLINE-JP2021JPN001495

PATIENT
  Age: 79 Year
  Sex: Female
  Weight: 41 kg

DRUGS (15)
  1. ELENTAL COMBINATION ORAL AGENT [Concomitant]
     Dosage: UNK
  2. MIYA?BM FINE GRANULES [Concomitant]
     Dosage: UNK
  3. LOPEMIN CAPSULES [Concomitant]
     Active Substance: LOPERAMIDE HYDROCHLORIDE
     Dosage: UNK, PRN
  4. RIZE TABLETS [Concomitant]
     Dosage: UNK, PRN
  5. LOXONIN TABLET [Suspect]
     Active Substance: LOXOPROFEN SODIUM
     Dosage: 60 MG, QD
     Route: 048
     Dates: start: 20200425
  6. RACOL?NF [Concomitant]
     Dosage: UNK
  7. NOBELZIN TABLETS [Concomitant]
     Dosage: UNK
  8. CEROCRAL [Concomitant]
     Active Substance: IFENPRODIL
     Dosage: UNK
  9. CALONAL [Suspect]
     Active Substance: ACETAMINOPHEN
     Dosage: 500 MG, QD
     Route: 048
     Dates: start: 20200425
  10. ONEALFA TABLETS [Concomitant]
     Dosage: UNK
  11. VALACYCLOVIR [Suspect]
     Active Substance: VALACYCLOVIR HYDROCHLORIDE
     Indication: HERPES VIRUS INFECTION
     Dosage: 1000 MG, BID
     Route: 048
     Dates: start: 20200424
  12. ZOLPIDEM TARTRATE TABLETS [Concomitant]
     Active Substance: ZOLPIDEM TARTRATE
     Dosage: UNK
  13. METHYCOBAL [Concomitant]
     Active Substance: METHYLCOBALAMIN
     Dosage: UNK
  14. GASTER D TABLETS [Concomitant]
     Dosage: UNK
  15. GLAKAY CAPSULE [Concomitant]
     Dosage: UNK

REACTIONS (6)
  - Pyrexia [Unknown]
  - Decreased appetite [Unknown]
  - Urine output decreased [Unknown]
  - Facial paralysis [Unknown]
  - Fluid intake reduced [Unknown]
  - Renal impairment [Recovering/Resolving]

NARRATIVE: CASE EVENT DATE: 20200425
